FAERS Safety Report 24444000 (Version 1)
Quarter: 2024Q4

REPORT INFORMATION
  Report Type: Spontaneous
  Country: US (occurrence: US)
  Receive Date: 20241016
  Receipt Date: 20241016
  Transmission Date: 20250114
  Serious: No
  Sender: MERCK
  Company Number: US-009507513-2410USA003835

PATIENT
  Sex: Male

DRUGS (2)
  1. TEMODAR [Suspect]
     Active Substance: TEMOZOLOMIDE
     Indication: Solitary fibrous tumour
     Dosage: 140 MILLIGRAM, TWO TIMES PER DAY
     Route: 048
  2. BEVACIZUMAB [Concomitant]
     Active Substance: BEVACIZUMAB
     Indication: Solitary fibrous tumour
     Dosage: 5 MILLIGRAM/KILOGRAM ON DAYS 8 AND 22

REACTIONS (1)
  - Off label use [Unknown]
